FAERS Safety Report 6432020-X (Version None)
Quarter: 2009Q4

REPORT INFORMATION
  Report Type: 
  Country: None (occurrence: None)
  Receive Date: 20091109
  Receipt Date: 20091029
  Transmission Date: 20100525
  Serious: Yes (Other)
  Sender: FDA-Public Use
  Company Number: CA-JNJFOC-20090500250

PATIENT
  Sex: Female
  Weight: 76.6 kg

DRUGS (3)
  1. REMICADE [Suspect]
     Indication: CROHN'S DISEASE
     Dosage: RECEIVED 1 DOSE
     Route: 042
     Dates: start: 20090420
  2. OXYCODONE [Concomitant]
  3. LOMOTIL [Concomitant]

REACTIONS (1)
  - MIGRAINE [None]
